FAERS Safety Report 22170884 (Version 1)
Quarter: 2023Q2

REPORT INFORMATION
  Report Type: Report from Study
  Country: JP (occurrence: JP)
  Receive Date: 20230404
  Receipt Date: 20230404
  Transmission Date: 20230722
  Serious: Yes (Death, Other)
  Sender: FDA-Public Use
  Company Number: JP-002147023-NVSJ2020JP007184

PATIENT
  Age: 57 Year
  Sex: Male
  Weight: 78 kg

DRUGS (16)
  1. KYMRIAH [Suspect]
     Active Substance: TISAGENLECLEUCEL
     Indication: Diffuse large B-cell lymphoma
     Dosage: 1.6, FULL DOSE ADMINISTERED, TOTAL CELLS ADMINISTERED: 1.6X10^ 8
     Route: 041
     Dates: start: 20200417, end: 20200417
  2. FLUDARABINE [Concomitant]
     Active Substance: FLUDARABINE PHOSPHATE
     Indication: Chemotherapy
     Dosage: 75 MG/M2
     Route: 065
     Dates: start: 20200413
  3. FLUDARABINE [Concomitant]
     Active Substance: FLUDARABINE PHOSPHATE
     Indication: Diffuse large B-cell lymphoma
     Dosage: UNK
     Route: 065
     Dates: start: 20200926, end: 20201002
  4. FLUDARABINE [Concomitant]
     Active Substance: FLUDARABINE PHOSPHATE
     Indication: Malignant neoplasm progression
  5. CYCLOPHOSPHAMIDE [Concomitant]
     Active Substance: CYCLOPHOSPHAMIDE
     Indication: Chemotherapy
     Dosage: UNK, R-DA-EPOCH 6 COURSES
     Route: 065
     Dates: start: 20180313
  6. CYCLOPHOSPHAMIDE [Concomitant]
     Active Substance: CYCLOPHOSPHAMIDE
     Indication: Diffuse large B-cell lymphoma
     Dosage: UNK
     Route: 065
     Dates: start: 202003
  7. CYCLOPHOSPHAMIDE [Concomitant]
     Active Substance: CYCLOPHOSPHAMIDE
     Indication: Diffuse large B-cell lymphoma
     Dosage: 750 MG/M2
     Route: 065
     Dates: start: 20200413
  8. CYCLOPHOSPHAMIDE [Concomitant]
     Active Substance: CYCLOPHOSPHAMIDE
     Indication: Malignant neoplasm progression
     Dosage: UNK
     Route: 065
     Dates: start: 20200612, end: 20200619
  9. ETOPOSIDE [Concomitant]
     Active Substance: ETOPOSIDE
     Indication: Diffuse large B-cell lymphoma
     Dosage: UNK, R-DA-EPOCH 6 COURSES
     Route: 065
     Dates: start: 20180313
  10. ETOPOSIDE [Concomitant]
     Active Substance: ETOPOSIDE
     Dosage: UNK
     Route: 065
     Dates: start: 202003
  11. PROCARBAZINE [Concomitant]
     Active Substance: PROCARBAZINE
     Indication: Diffuse large B-cell lymphoma
     Dosage: UNK
     Route: 065
     Dates: start: 202003
  12. RITUXIMAB [Concomitant]
     Active Substance: RITUXIMAB
     Indication: Diffuse large B-cell lymphoma
     Dosage: UNK, R-DA-EPOCH 6 COURSES
     Route: 065
     Dates: start: 20180313
  13. RITUXIMAB [Concomitant]
     Active Substance: RITUXIMAB
     Indication: Diffuse large B-cell lymphoma
     Dosage: UNK
     Route: 065
     Dates: start: 202003
  14. RITUXIMAB [Concomitant]
     Active Substance: RITUXIMAB
     Indication: Malignant neoplasm progression
     Dosage: UNK
     Route: 065
     Dates: start: 20200612, end: 20200619
  15. PREDNISOLONE [Concomitant]
     Active Substance: PREDNISOLONE
     Indication: Diffuse large B-cell lymphoma
     Dosage: UNK, R-DA-EPOCH 6 COURSES
     Route: 065
     Dates: start: 20180313
  16. PREDNISOLONE [Concomitant]
     Active Substance: PREDNISOLONE
     Dosage: UNK
     Route: 065
     Dates: start: 202003

REACTIONS (16)
  - Diffuse large B-cell lymphoma [Fatal]
  - Malignant neoplasm progression [Fatal]
  - Lymphadenopathy [Fatal]
  - Pyrexia [Fatal]
  - Blood pressure decreased [Fatal]
  - Neutrophil count decreased [Recovered/Resolved]
  - Platelet count decreased [Recovered/Resolved]
  - White blood cell count decreased [Recovered/Resolved]
  - Hypogammaglobulinaemia [Not Recovered/Not Resolved]
  - Haemoglobin decreased [Unknown]
  - Neutrophil count decreased [Recovered/Resolved]
  - Platelet count decreased [Unknown]
  - White blood cell count decreased [Unknown]
  - C-reactive protein increased [Unknown]
  - Feeling hot [Unknown]
  - Pain [Recovered/Resolved]

NARRATIVE: CASE EVENT DATE: 20200424
